FAERS Safety Report 23986869 (Version 1)
Quarter: 2024Q2

REPORT INFORMATION
  Report Type: Spontaneous
  Country: US (occurrence: US)
  Receive Date: 20240618
  Receipt Date: 20240618
  Transmission Date: 20240715
  Serious: No
  Sender: FDA-Public Use
  Company Number: US-INNOVIVA SPECIALTY THERAPEUTICS-2024-INNO-US000025

PATIENT
  Age: 49 Year
  Sex: Male

DRUGS (1)
  1. XACDURO [Suspect]
     Active Substance: DURLOBACTAM SODIUM\SULBACTAM SODIUM
     Indication: Acinetobacter bacteraemia
     Dosage: SULBACTAM 1 GRAM/DURLOBACTAM 1 GRAM EVERY 4 HOURS
     Route: 065
     Dates: start: 20240419, end: 20240501

REACTIONS (3)
  - Extra dose administered [Unknown]
  - Product packaging confusion [Unknown]
  - Off label use [Unknown]
